FAERS Safety Report 5232741-0 (Version None)
Quarter: 2007Q1

REPORT INFORMATION
  Report Type: 
  Country: None (occurrence: None)
  Receive Date: 20070206
  Receipt Date: 20070206
  Transmission Date: 20070707
  Serious: Yes (Hospitalization, Disabling)
  Sender: FDA-Public Use
  Company Number: None

PATIENT
  Age: 51 Year
  Sex: Male
  Weight: 102.0593 kg

DRUGS (1)
  1. PAXIL [Suspect]
     Indication: ANTIDEPRESSANT THERAPY
     Dosage: 20MG   1 PER DAY   PO
     Route: 048

REACTIONS (2)
  - ABNORMAL BEHAVIOUR [None]
  - DELUSION [None]
